FAERS Safety Report 16244271 (Version 3)
Quarter: 2019Q2

REPORT INFORMATION
  Report Type: Spontaneous
  Country: IT (occurrence: IT)
  Receive Date: 20190426
  Receipt Date: 20190502
  Transmission Date: 20190711
  Serious: Yes (Other)
  Sender: FDA-Public Use
  Company Number: IT-PFIZER INC-2019177765

PATIENT
  Age: 57 Year
  Sex: Male

DRUGS (5)
  1. PANTORC [Concomitant]
     Active Substance: PANTOPRAZOLE SODIUM
     Dosage: UNK
  2. CARDIOASPIRIN [Interacting]
     Active Substance: ASPIRIN
     Indication: HYPERTENSION
     Dosage: 100 MG, QD (CARDIOASPIRIN 100 MG GASTRORESISTENT TABLETS)
     Route: 065
  3. ATENOLOL. [Concomitant]
     Active Substance: ATENOLOL
     Indication: HYPERTENSION
     Dosage: UNK
  4. INDOXEN [Interacting]
     Active Substance: INDOMETHACIN
     Indication: HEADACHE
     Dosage: 1 DF, TOTAL (25 MG)
     Route: 048
     Dates: start: 20190214, end: 20190215
  5. RAMIPRIL. [Suspect]
     Active Substance: RAMIPRIL
     Indication: HYPERTENSION
     Dosage: UNK
     Route: 065

REACTIONS (3)
  - Chest pain [Recovering/Resolving]
  - Drug interaction [Unknown]
  - Hypertension [Recovering/Resolving]

NARRATIVE: CASE EVENT DATE: 20190214
